FAERS Safety Report 11605388 (Version 1)
Quarter: 2015Q4

REPORT INFORMATION
  Report Type: Spontaneous
  Country: US (occurrence: US)
  Receive Date: 20151007
  Receipt Date: 20151007
  Transmission Date: 20160304
  Serious: Yes (Other)
  Sender: FDA-Public Use
  Company Number: US-PFIZER INC-2015332980

PATIENT
  Age: 57 Year
  Sex: Female
  Weight: 86 kg

DRUGS (1)
  1. MEDROXYPROGESTERONE ACETATE. [Suspect]
     Active Substance: MEDROXYPROGESTERONE ACETATE
     Dosage: 2.5 MG, 1X/DAY  (IN THE MORNING)
     Route: 048

REACTIONS (1)
  - Uterine haemorrhage [Unknown]
